FAERS Safety Report 16386023 (Version 4)
Quarter: 2020Q1

REPORT INFORMATION
  Report Type: Report from Study
  Country: US (occurrence: US)
  Receive Date: 20190603
  Receipt Date: 20200204
  Transmission Date: 20200409
  Serious: Yes (Death, Disabling, Other)
  Sender: FDA-Public Use
  Company Number: US-ACTELION-A-NJ2018-177371

PATIENT
  Age: 75 Year
  Sex: Female

DRUGS (2)
  1. LASIX [Concomitant]
     Active Substance: FUROSEMIDE
     Indication: FLUID RETENTION
  2. OPSUMIT [Suspect]
     Active Substance: MACITENTAN
     Indication: PULMONARY ARTERIAL HYPERTENSION
     Dosage: 10 MG, QD
     Route: 048
     Dates: start: 20150519

REACTIONS (5)
  - Staphylococcal infection [Unknown]
  - Hypoacusis [Unknown]
  - Pneumonia [Unknown]
  - Fluid retention [Unknown]
  - Road traffic accident [Fatal]

NARRATIVE: CASE EVENT DATE: 20191216
